FAERS Safety Report 4490902-2 (Version None)
Quarter: 2004Q4

REPORT INFORMATION
  Report Type: 
  Country: None (occurrence: None)
  Receive Date: 20041027
  Receipt Date: 20041012
  Transmission Date: 20050328
  Serious: Yes (Death, Hospitalization)
  Sender: FDA-Public Use
  Company Number: 2004-BP-09886RO

PATIENT
  Age: 18 Year
  Sex: Male

DRUGS (2)
  1. METHOTREXATE [Suspect]
     Indication: ACUTE LYMPHOCYTIC LEUKAEMIA
     Dosage: DOSE 1: 2.5 G/M2/24H; DOSE 2:1625 MG/M2/24H (NR,1 IN 2 WK) , IV
     Route: 042
  2. MERCAPTOPURINE [Concomitant]

REACTIONS (39)
  - ABDOMINAL DISTENSION [None]
  - ASCITES INFECTION [None]
  - ATELECTASIS [None]
  - BACK PAIN [None]
  - BACTEROIDES INFECTION [None]
  - BLOOD BILIRUBIN INCREASED [None]
  - BLOOD CREATININE INCREASED [None]
  - BLOOD LACTIC ACID INCREASED [None]
  - BLOOD UREA INCREASED [None]
  - CAECITIS [None]
  - CLOSTRIDIAL INFECTION [None]
  - CSF TEST ABNORMAL [None]
  - DRUG LEVEL INCREASED [None]
  - GENERAL PHYSICAL HEALTH DETERIORATION [None]
  - GRANULOMA [None]
  - HAEMODIALYSIS [None]
  - HEPATIC FUNCTION ABNORMAL [None]
  - HISTOPLASMOSIS [None]
  - HYPOTENSION [None]
  - INFARCTION [None]
  - INFLAMMATION [None]
  - INJECTION SITE PAIN [None]
  - LUNG NEOPLASM [None]
  - METABOLIC ACIDOSIS [None]
  - MUCOSAL INFLAMMATION [None]
  - MULTI-ORGAN FAILURE [None]
  - NEUTROPENIA [None]
  - PLEURAL EFFUSION [None]
  - PLEURISY [None]
  - PNEUMATOSIS CYSTOIDES INTESTINALIS [None]
  - POOR PERIPHERAL CIRCULATION [None]
  - RENAL IMPAIRMENT [None]
  - RESPIRATORY DISTRESS [None]
  - RESPIRATORY FAILURE [None]
  - SEPTIC SHOCK [None]
  - STAPHYLOCOCCAL INFECTION [None]
  - TACHYCARDIA [None]
  - THERAPY NON-RESPONDER [None]
  - URINE OUTPUT DECREASED [None]
